FAERS Safety Report 6990855-9 (Version None)
Quarter: 2010Q3

REPORT INFORMATION
  Report Type: 
  Country: None (occurrence: None)
  Receive Date: 20100916
  Receipt Date: 20081223
  Transmission Date: 20110219
  Serious: No
  Sender: FDA-Public Use
  Company Number: US-WYE-H03177708

PATIENT
  Age: 55 Year
  Sex: Female
  Weight: 59.02 kg

DRUGS (7)
  1. PREMARIN [Suspect]
     Indication: HORMONE THERAPY
     Route: 048
     Dates: start: 19800101
  2. KLONOPIN [Concomitant]
  3. PROSOM [Concomitant]
  4. STOOL SOFTENER [Concomitant]
  5. MULTI-VITAMINS [Concomitant]
  6. SYNTHROID [Concomitant]
  7. BENZOYL PEROXIDE [Concomitant]

REACTIONS (22)
  - CONSTIPATION [None]
  - DISTURBANCE IN ATTENTION [None]
  - DRUG INEFFECTIVE [None]
  - DRY MOUTH [None]
  - DRY SKIN [None]
  - FAECAL INCONTINENCE [None]
  - HYPOTENSION [None]
  - INSOMNIA [None]
  - LACTOSE INTOLERANCE [None]
  - MOOD SWINGS [None]
  - MUSCLE RUPTURE [None]
  - MUSCLE SPASMS [None]
  - PRODUCT QUALITY ISSUE [None]
  - RASH [None]
  - RASH GENERALISED [None]
  - RECTOCELE [None]
  - ROSACEA [None]
  - SLEEP DISORDER [None]
  - UNEVALUABLE EVENT [None]
  - URINARY INCONTINENCE [None]
  - VAGINAL DISORDER [None]
  - VULVOVAGINAL DRYNESS [None]
